FAERS Safety Report 8480152-7 (Version None)
Quarter: 2012Q2

REPORT INFORMATION
  Report Type: 
  Country: None (occurrence: None)
  Receive Date: 20120629
  Receipt Date: 20120620
  Transmission Date: 20120825
  Serious: Yes (Hospitalization, Other)
  Sender: FDA-Public Use
  Company Number: US-ASTRAZENECA-2011SE40341

PATIENT
  Age: 59 Year
  Sex: Female

DRUGS (1)
  1. ARIMIDEX [Suspect]
     Route: 048

REACTIONS (4)
  - BREAST CANCER [None]
  - MALAISE [None]
  - HYPERTENSION [None]
  - NEOPLASM MALIGNANT [None]
